FAERS Safety Report 18092239 (Version 1)
Quarter: 2020Q3

REPORT INFORMATION
  Report Type: Spontaneous
  Country: US (occurrence: US)
  Receive Date: 20200730
  Receipt Date: 20200730
  Transmission Date: 20201103
  Serious: Yes (Other)
  Sender: FDA-Public Use
  Company Number: None

PATIENT
  Age: 68 Year
  Sex: Male
  Weight: 105.75 kg

DRUGS (22)
  1. SIMVASTATIN. [Concomitant]
     Active Substance: SIMVASTATIN
  2. CPAP [Concomitant]
     Active Substance: DEVICE
  3. MINOXIDIL. [Concomitant]
     Active Substance: MINOXIDIL
  4. SUBLINGUAL [Concomitant]
  5. OZEMPIC [Concomitant]
     Active Substance: SEMAGLUTIDE
  6. IIRON [Concomitant]
  7. BUSPIRONE [Concomitant]
     Active Substance: BUSPIRONE HYDROCHLORIDE
  8. LOSARTAN. [Concomitant]
     Active Substance: LOSARTAN
  9. ASPIRIN 85MG [Concomitant]
  10. EYLEA [Suspect]
     Active Substance: AFLIBERCEPT
     Indication: RETINAL VEIN OCCLUSION
     Dosage: ?          OTHER FREQUENCY:MONTHLY;?
     Route: 047
     Dates: start: 20200622
  11. CLONIDINE. [Concomitant]
     Active Substance: CLONIDINE
  12. DILITIAZEM [Concomitant]
     Active Substance: DILTIAZEM
  13. HYDROCHLOROTHIAZIDE. [Concomitant]
     Active Substance: HYDROCHLOROTHIAZIDE
  14. METFORMIN [Concomitant]
     Active Substance: METFORMIN HYDROCHLORIDE
  15. CARVEDILOL. [Concomitant]
     Active Substance: CARVEDILOL
  16. BILBERRY [Concomitant]
     Active Substance: BILBERRY
  17. BASAGLAR [Concomitant]
     Active Substance: INSULIN GLARGINE
  18. MULTIVITAMIN [Concomitant]
     Active Substance: VITAMINS
  19. VITAMIN D3 [Concomitant]
     Active Substance: CHOLECALCIFEROL
  20. HUMALOG [Concomitant]
     Active Substance: INSULIN LISPRO
  21. NITROGLYCERINE [Concomitant]
     Active Substance: NITROGLYCERIN
  22. LUEIN [Concomitant]

REACTIONS (3)
  - Headache [None]
  - Product quality issue [None]
  - Manufacturing issue [None]

NARRATIVE: CASE EVENT DATE: 20200729
